FAERS Safety Report 10045712 (Version 2)
Quarter: 2014Q1

REPORT INFORMATION
  Report Type: Spontaneous
  Country: US (occurrence: US)
  Receive Date: 20140328
  Receipt Date: 20140328
  Transmission Date: 20141002
  Serious: Yes (Other)
  Sender: FDA-Public Use
  Company Number: US-GE HEALTHCARE MEDICAL DIAGNOSTICS-OSCN-PR-0807S-0459

PATIENT
  Sex: Female

DRUGS (7)
  1. GADOLINIUM (UNSPECIFIED) [Suspect]
     Indication: PROLACTINOMA
     Route: 042
     Dates: start: 20010403, end: 20010403
  2. GADOLINIUM (UNSPECIFIED) [Suspect]
     Indication: ADENOMA BENIGN
     Route: 042
     Dates: start: 20011210, end: 20011210
  3. GADOLINIUM (UNSPECIFIED) [Suspect]
     Indication: PRODUCT USED FOR UNKNOWN INDICATION
     Route: 042
     Dates: start: 20031205, end: 20031205
  4. MAGNEVIST [Suspect]
     Indication: PRODUCT USED FOR UNKNOWN INDICATION
     Route: 042
     Dates: start: 20051003, end: 20051003
  5. MAGNEVIST [Suspect]
     Indication: BLOOD PROLACTIN INCREASED
     Route: 042
     Dates: start: 20060307, end: 20060307
  6. MAGNEVIST [Suspect]
     Indication: GAIT DISTURBANCE
     Route: 042
     Dates: start: 20030826, end: 20030826
  7. MAGNEVIST [Suspect]
     Indication: HYPOAESTHESIA

REACTIONS (1)
  - Nephrogenic systemic fibrosis [Not Recovered/Not Resolved]
